FAERS Safety Report 18488940 (Version 4)
Quarter: 2021Q1

REPORT INFORMATION
  Report Type: Spontaneous
  Country: US (occurrence: US)
  Receive Date: 20201111
  Receipt Date: 20210204
  Transmission Date: 20210419
  Serious: No
  Sender: FDA-Public Use
  Company Number: US-NEUROCRINE BIOSCIENCES INC.-2020NBI04013

PATIENT
  Age: 75 Year
  Sex: Female

DRUGS (28)
  1. KETOCONAZOLE. [Concomitant]
     Active Substance: KETOCONAZOLE
     Dosage: APPLY TO AFFECTED AREA(S) LATHER, LEAVE IN PLACE FOR 5 MIN THEN RINSE WITH WATER
     Route: 061
     Dates: start: 20200818
  2. MACROBID [Concomitant]
     Active Substance: NITROFURANTOIN\NITROFURANTOIN MONOHYDRATE
     Dosage: WITH FOOD
     Route: 048
     Dates: start: 20201009
  3. VANCOMYCIN [Concomitant]
     Active Substance: VANCOMYCIN
     Route: 048
     Dates: start: 20201106
  4. INGREZZA [Suspect]
     Active Substance: VALBENAZINE
     Route: 048
  5. MOXIFLOXACIN. [Concomitant]
     Active Substance: MOXIFLOXACIN
     Route: 048
     Dates: start: 20201013
  6. OXYGEN VARIABLE INHALATION [Concomitant]
     Dosage: 3?4 L QD;
     Dates: start: 20190131
  7. OXYGEN VARIABLE INHALATION [Concomitant]
     Dosage: CONTINUOS OXYGEN BY NASAL CANNULA. 3?4 LPM COPD, ASPIRATION CAUSING PNEUMONIA (J44.1)
     Dates: start: 20190912
  8. TRELEGY ELLIPTA [Concomitant]
     Active Substance: FLUTICASONE FUROATE\UMECLIDINIUM BROMIDE\VILANTEROL TRIFENATATE
     Dosage: 100 MCG?62.5 MCG?25 MCG POWDER FOR INHALATION
     Dates: start: 20191030
  9. INGREZZA [Suspect]
     Active Substance: VALBENAZINE
     Indication: TARDIVE DYSKINESIA
     Route: 048
     Dates: start: 20200930
  10. MIRAPEX [Concomitant]
     Active Substance: PRAMIPEXOLE DIHYDROCHLORIDE
     Dosage: 2?3 HOURS BEFORE BEDTIME
     Route: 048
     Dates: start: 20201005
  11. PROMETHAZINE?DM [Concomitant]
     Dosage: 6.25MG?15MG/5ML AS NEEDED
     Route: 048
     Dates: start: 20201013
  12. LISINOPRIL. [Concomitant]
     Active Substance: LISINOPRIL
     Route: 048
     Dates: start: 20190131
  13. MIRAPEX [Concomitant]
     Active Substance: PRAMIPEXOLE DIHYDROCHLORIDE
     Dosage: 2?3 HOURS BEFORE BEDTIME
     Route: 048
  14. PREDNISONE. [Concomitant]
     Active Substance: PREDNISONE
     Route: 048
  15. XANAX [Concomitant]
     Active Substance: ALPRAZOLAM
     Dosage: 1/2 TO 1 TABLET PRN
     Route: 048
     Dates: start: 20201017
  16. BYSTOLIC [Concomitant]
     Active Substance: NEBIVOLOL HYDROCHLORIDE
     Route: 048
     Dates: start: 20201104
  17. PREDNISONE. [Concomitant]
     Active Substance: PREDNISONE
     Route: 048
     Dates: start: 20201013
  18. PREDNISONE. [Concomitant]
     Active Substance: PREDNISONE
     Route: 048
  19. PREVACID [Concomitant]
     Active Substance: LANSOPRAZOLE
     Dosage: BEFORE A MEAL
     Route: 048
     Dates: start: 20200324
  20. VENTOLIN HFA [Concomitant]
     Active Substance: ALBUTEROL SULFATE
     Dosage: INHALE 2 PUFF BY INHALATIONAL, EVERY 4?6 HOURS AS NEEDED
     Dates: start: 20190131
  21. MORPHINE [Concomitant]
     Active Substance: MORPHINE
     Dosage: AS NEEDED, IMMEDIATE RELEASE TABLET
     Route: 048
     Dates: start: 20190131
  22. MYRBETRIQ [Concomitant]
     Active Substance: MIRABEGRON
     Dosage: EXTENDED RELEASE
     Route: 048
     Dates: start: 20200923
  23. PERCOCET [Concomitant]
     Active Substance: ACETAMINOPHEN\OXYCODONE HYDROCHLORIDE
     Dosage: 10MG?325MG, AS NEEDED
     Route: 048
     Dates: start: 20190912
  24. OMEGA 3?DHA?EPA?FISH OIL [Concomitant]
     Dosage: 120 MG?180 MG
     Route: 048
     Dates: start: 20190131
  25. PRAMIPEXOLE. [Concomitant]
     Active Substance: PRAMIPEXOLE
     Dosage: 2?3 HOURS BEFORE BEDTIME FOR ONE WEEK THAN INCREASE TO TWO TABLETS DAILY
     Route: 048
     Dates: start: 20201207
  26. BYSTOLIC [Concomitant]
     Active Substance: NEBIVOLOL HYDROCHLORIDE
     Dosage: 20MEQ SR
     Route: 048
     Dates: start: 20060609
  27. LOMOTIL [Concomitant]
     Active Substance: ATROPINE SULFATE\DIPHENOXYLATE HYDROCHLORIDE
     Dosage: 2.5 MG?0.025 MG TABLET, 2 TABLET AS NEEDED
     Route: 048
     Dates: start: 20201017
  28. SOMA [Concomitant]
     Active Substance: CARISOPRODOL
     Dosage: AT BEDTIME
     Route: 048
     Dates: start: 20191108

REACTIONS (6)
  - Headache [Recovered/Resolved]
  - Tremor [Unknown]
  - Memory impairment [Unknown]
  - Dizziness [Unknown]
  - Clostridium difficile colitis [Unknown]
  - Drug ineffective [Unknown]

NARRATIVE: CASE EVENT DATE: 202010
